FAERS Safety Report 22083394 (Version 1)
Quarter: 2023Q1

REPORT INFORMATION
  Report Type: Spontaneous
  Country: JP (occurrence: JP)
  Receive Date: 20230310
  Receipt Date: 20230310
  Transmission Date: 20230418
  Serious: Yes (Death, Hospitalization, Other)
  Sender: FDA-Public Use
  Company Number: JP-STRIDES ARCOLAB LIMITED-2023SP003688

PATIENT
  Age: 88 Year
  Sex: Female

DRUGS (3)
  1. PREDNISOLONE [Suspect]
     Active Substance: PREDNISOLONE
     Indication: Pemphigus
     Dosage: 30 MILLIGRAM PER DAY, 1 MONTH PREVIOUSLY
     Route: 048
  2. PREDNISOLONE [Suspect]
     Active Substance: PREDNISOLONE
     Dosage: 50 MILLIGRAM PER DAY
     Route: 048
  3. METHYLPREDNISOLONE [Suspect]
     Active Substance: METHYLPREDNISOLONE
     Indication: Pemphigus
     Dosage: 1000 MILLIGRAM, PULSE THERAPY FOR CONSECUTIVE 3 DAYS
     Route: 065

REACTIONS (4)
  - Eczema herpeticum [Fatal]
  - Therapy non-responder [Unknown]
  - Treatment delayed [Unknown]
  - Staphylococcal infection [Unknown]
